FAERS Safety Report 5399620-X (Version None)
Quarter: 2007Q3

REPORT INFORMATION
  Report Type: 
  Country: None (occurrence: None)
  Receive Date: 20070727
  Receipt Date: 20070718
  Transmission Date: 20080115
  Serious: Yes (Other)
  Sender: FDA-Public Use
  Company Number: JP-PFIZER INC-2007055205

PATIENT
  Sex: Male

DRUGS (6)
  1. XALATAN [Suspect]
     Indication: ANGLE CLOSURE GLAUCOMA
     Route: 031
  2. GASCON [Suspect]
     Dosage: DAILY DOSE:40MG
     Route: 048
     Dates: start: 20060701, end: 20070528
  3. FAMOTIDINE [Concomitant]
  4. TIMOLOL MALEATE [Concomitant]
     Dates: start: 20010425, end: 20070206
  5. LEVOBUNOLOL HYDROCHLORIDE [Concomitant]
  6. AZOPT [Concomitant]

REACTIONS (1)
  - INTRAOCULAR PRESSURE INCREASED [None]
